FAERS Safety Report 9276918 (Version 2)
Quarter: 2013Q2

REPORT INFORMATION
  Report Type: Spontaneous
  Country: ZA (occurrence: None)
  Receive Date: 20130501
  Receipt Date: 20130520
  Transmission Date: 20140414
  Serious: Yes (Other)
  Sender: FDA-Public Use
  Company Number: AUR-APL-2013-03400

PATIENT
  Sex: 0

DRUGS (5)
  1. LAMIVUDINE [Suspect]
     Indication: ANTIRETROVIRAL THERAPY
  2. ZIDOVUDINE [Suspect]
     Indication: ANTIRETROVIRAL THERAPY
  3. EFAVIRENZ [Suspect]
     Indication: ANTIRETROVIRAL THERAPY
  4. TRIMETHOPRIM SULFAMETHOXAZOLE (BACTRIM) [Concomitant]
  5. ISONIAZID (ISONIAZID) [Concomitant]

REACTIONS (4)
  - Drug-induced liver injury [None]
  - Alanine aminotransferase increased [None]
  - Diarrhoea [None]
  - Cough [None]
